FAERS Safety Report 5730761-0 (Version None)
Quarter: 2008Q2

REPORT INFORMATION
  Report Type: 
  Country: None (occurrence: None)
  Receive Date: 20080507
  Receipt Date: 20080425
  Transmission Date: 20081010
  Serious: Yes (Hospitalization, Other)
  Sender: FDA-Public Use
  Company Number: US-PFIZER INC-2008036562

PATIENT
  Age: 92 Year
  Sex: Female

DRUGS (3)
  1. DETROL LA [Suspect]
  2. ANTIHYPERTENSIVES [Concomitant]
  3. CHOLESTEROL [Concomitant]

REACTIONS (3)
  - BLOOD POTASSIUM DECREASED [None]
  - CONFUSIONAL STATE [None]
  - FALL [None]
